FAERS Safety Report 7898299-2 (Version None)
Quarter: 2011Q4

REPORT INFORMATION
  Report Type: 
  Country: None (occurrence: None)
  Receive Date: 20111107
  Receipt Date: 20111031
  Transmission Date: 20120403
  Serious: Yes (Hospitalization, Other)
  Sender: FDA-Public Use
  Company Number: BR-SANOFI-AVENTIS-2011SA071801

PATIENT
  Age: 60 Year
  Sex: Male
  Weight: 94 kg

DRUGS (11)
  1. LOSARTAN [Concomitant]
     Indication: BLOOD PRESSURE
     Route: 048
  2. METFORMIN HCL [Concomitant]
     Route: 048
  3. OS-CAL [Concomitant]
     Route: 048
  4. CLIKSTAR [Suspect]
     Indication: DEVICE THERAPY
     Dates: start: 20050101
  5. MANIDIPINE HYDROCHLORIDE [Concomitant]
     Indication: BLOOD PRESSURE
     Route: 048
  6. SOTALOL HCL [Concomitant]
     Indication: ARRHYTHMIA
     Route: 048
  7. LANTUS [Suspect]
     Indication: TYPE 2 DIABETES MELLITUS
     Dosage: ABOUT SIX YEARS AGO
     Route: 058
     Dates: start: 20050101
  8. SUSTRATE [Concomitant]
     Route: 060
  9. METOPROLOL SUCCINATE [Concomitant]
     Route: 048
  10. CLOPIDOGREL [Concomitant]
     Indication: ARRHYTHMIA
     Route: 048
  11. HUMALOG [Concomitant]
     Indication: TYPE 2 DIABETES MELLITUS
     Dosage: ACCORDING TO GLYCEMIA
     Route: 058

REACTIONS (3)
  - ARRHYTHMIA [None]
  - WEIGHT DECREASED [None]
  - THYROID DISORDER [None]
